FAERS Safety Report 13739142 (Version 1)
Quarter: 2017Q3

REPORT INFORMATION
  Report Type: Spontaneous
  Country: US (occurrence: US)
  Receive Date: 20170710
  Receipt Date: 20170710
  Transmission Date: 20171127
  Serious: No
  Sender: FDA-Public Use
  Company Number: US-SAOL THERAPEUTICS-2017SAO00904

PATIENT
  Sex: Male
  Weight: 54.42 kg

DRUGS (2)
  1. LIORESAL [Suspect]
     Active Substance: BACLOFEN
     Indication: MUSCLE SPASMS
     Dosage: 211.9 ?G, \DAY
     Route: 037
     Dates: start: 20170518
  2. LIORESAL [Suspect]
     Active Substance: BACLOFEN
     Indication: MUSCLE SPASTICITY
     Dosage: 184.8 ?G, \DAY
     Route: 037
     Dates: start: 2009, end: 20170518

REACTIONS (12)
  - Muscle tightness [Unknown]
  - Back pain [Unknown]
  - Clonus [Unknown]
  - Joint contracture [Not Recovered/Not Resolved]
  - Urinary retention [Unknown]
  - Device kink [Unknown]
  - Hypertonia [Unknown]
  - Dysuria [Unknown]
  - Abdominal pain [Unknown]
  - Anxiety [Unknown]
  - Muscle spasms [Unknown]
  - Hyperreflexia [Unknown]

NARRATIVE: CASE EVENT DATE: 2017
